FAERS Safety Report 22064186 (Version 2)
Quarter: 2023Q1

REPORT INFORMATION
  Report Type: Report from Study
  Country: BR (occurrence: BR)
  Receive Date: 20230306
  Receipt Date: 20230308
  Transmission Date: 20230417
  Serious: Yes (Other)
  Sender: FDA-Public Use
  Company Number: BR-CELLTRION INC.-2023BR004573

PATIENT

DRUGS (1)
  1. TRUXIMA [Suspect]
     Active Substance: RITUXIMAB-ABBS
     Indication: Epidermolysis bullosa
     Dosage: 2 AMPOULES - AFTER 15 DAYS MORE 2 AMPOULES
     Route: 042

REACTIONS (2)
  - Epidermolysis bullosa [Unknown]
  - Off label use [Unknown]
